FAERS Safety Report 10420323 (Version 2)
Quarter: 2014Q3

REPORT INFORMATION
  Report Type: Spontaneous
  Country: US (occurrence: None)
  Receive Date: 20140701
  Receipt Date: 20140926
  Transmission Date: 20150326
  Serious: No
  Sender: FDA-Public Use
  Company Number: 1000066362

PATIENT
  Age: 82 Year
  Sex: Female

DRUGS (2)
  1. LINZESS [Suspect]
     Active Substance: LINACLOTIDE
     Indication: PRODUCT USED FOR UNKNOWN INDICATION
     Route: 048
     Dates: start: 2013
  2. MIRALAX (POLYETHYLENE GLYCOL 3350) [Concomitant]

REACTIONS (4)
  - Abdominal discomfort [None]
  - Diarrhoea [None]
  - Gastrointestinal motility disorder [None]
  - Faecal incontinence [None]
